FAERS Safety Report 7292677 (Version 2)
Quarter: 2015Q3

REPORT INFORMATION
  Report Type: Report from Study
  Country: JP (occurrence: JP)
  Receive Date: 20100224
  Receipt Date: 20150910
  Transmission Date: 20151125
  Serious: Yes (Hospitalization)
  Sender: FDA-Public Use
  Company Number: JP-ROCHE-681485

PATIENT
  Age: 82 Year
  Sex: Male
  Weight: 49.3 kg

DRUGS (5)
  1. VITAMIN D3 [Concomitant]
     Active Substance: CHOLECALCIFEROL
     Dosage: DRUG NAME: VD3/CA, NOTE: CA 305 MG AND VD3 200IU/DAY.
     Route: 048
     Dates: start: 20080618, end: 20100119
  2. RISEDRONIC ACID [Suspect]
     Active Substance: RISEDRONIC ACID
     Indication: OSTEOPOROSIS
     Route: 048
     Dates: start: 20080618, end: 20080618
  3. PLACEBO [Suspect]
     Active Substance: UNSPECIFIED INGREDIENT
     Indication: OSTEOPOROSIS
     Route: 042
     Dates: start: 20080618, end: 20091216
  4. KETOPROFEN. [Concomitant]
     Active Substance: KETOPROFEN
     Dosage: DRUG NAME: MOHRUS TAPE(KETOPROFEN), DOSE FORM: TAPE, NOTE: SINGLE USE
     Route: 061
  5. INTEBAN [Concomitant]
     Active Substance: INDOMETHACIN
     Dosage: DOSE FORM: OINTMENT AND CREAM.  NOTE: SINGLE USE
     Route: 061

REACTIONS (1)
  - Duodenitis haemorrhagic [Recovered/Resolved]

NARRATIVE: CASE EVENT DATE: 20100119
